FAERS Safety Report 7355516-5 (Version None)
Quarter: 2011Q1

REPORT INFORMATION
  Report Type: 
  Country: None (occurrence: None)
  Receive Date: 20110316
  Receipt Date: 20110309
  Transmission Date: 20110831
  Serious: Yes (Congenital Anomaly)
  Sender: FDA-Public Use
  Company Number: A0918082A

PATIENT
  Sex: Male
  Weight: 3.5 kg

DRUGS (1)
  1. PAXIL [Suspect]
     Dosage: 30MG UNKNOWN
     Route: 048

REACTIONS (6)
  - CARDIAC MURMUR [None]
  - LARYNGOMALACIA [None]
  - CONGENITAL TRACHEOMALACIA [None]
  - HYPOSPADIAS [None]
  - DRUG EXPOSURE DURING PREGNANCY [None]
  - CEREBRAL PALSY [None]
